FAERS Safety Report 24905001 (Version 2)
Quarter: 2025Q1

REPORT INFORMATION
  Report Type: Spontaneous
  Country: CN (occurrence: CN)
  Receive Date: 20250130
  Receipt Date: 20250218
  Transmission Date: 20250408
  Serious: Yes (Hospitalization, Other)
  Sender: PFIZER
  Company Number: CN-PFIZER INC-PV202500010701

PATIENT
  Age: 74 Year
  Sex: Male
  Weight: 60 kg

DRUGS (6)
  1. METHOTREXATE SODIUM [Suspect]
     Active Substance: METHOTREXATE SODIUM
     Indication: Chemotherapy
     Dosage: 7 G, 1X/DAY
     Route: 041
     Dates: start: 20250116, end: 20250116
  2. METHOTREXATE SODIUM [Suspect]
     Active Substance: METHOTREXATE SODIUM
     Indication: B-cell lymphoma
     Dosage: 7 G, 1X/DAY
     Route: 041
     Dates: start: 20250118, end: 20250118
  3. SODIUM CHLORIDE [Suspect]
     Active Substance: SODIUM CHLORIDE
     Indication: Chemotherapy
     Dosage: 400 ML, 1X/DAY
     Route: 041
     Dates: start: 20250116, end: 20250116
  4. SODIUM CHLORIDE [Suspect]
     Active Substance: SODIUM CHLORIDE
     Dosage: 400 ML, 1X/DAY
     Route: 041
     Dates: start: 20250118, end: 20250118
  5. SODIUM BICARBONATE [Concomitant]
     Active Substance: SODIUM BICARBONATE
     Indication: Therapeutic procedure
     Dosage: 250 ML, 3X/DAY
     Route: 041
     Dates: start: 20250117, end: 20250119
  6. LEUCOVORIN CALCIUM [Concomitant]
     Active Substance: LEUCOVORIN CALCIUM
     Indication: Therapeutic procedure
     Dosage: 15.0 MG, 4X/DAY
     Route: 030
     Dates: start: 20250117, end: 20250119

REACTIONS (3)
  - Toxicity to various agents [Recovering/Resolving]
  - Metabolic disorder [Not Recovered/Not Resolved]
  - Renal failure [Not Recovered/Not Resolved]

NARRATIVE: CASE EVENT DATE: 20250118
